FAERS Safety Report 9241439 (Version 2)
Quarter: 2014Q2

REPORT INFORMATION
  Report Type: Spontaneous
  Country: US (occurrence: US)
  Receive Date: 20130419
  Receipt Date: 20140509
  Transmission Date: 20141212
  Serious: No
  Sender: FDA-Public Use
  Company Number: US-BIOGENIDEC-2013BI033999

PATIENT
  Age: 66 Year
  Sex: Male
  Weight: 63 kg

DRUGS (20)
  1. DECADRON [Concomitant]
     Route: 030
  2. VALIUM [Concomitant]
  3. FOLIC ACID [Concomitant]
  4. NEURONTIN [Concomitant]
  5. HYOSCINE [Concomitant]
  6. VIAGRA [Concomitant]
  7. ETODOLAC [Concomitant]
  8. AVONEX [Suspect]
     Indication: MULTIPLE SCLEROSIS
     Route: 030
  9. AMPYRA [Concomitant]
     Indication: GAIT DISTURBANCE
     Dates: start: 2011
  10. ASPIRIN [Concomitant]
  11. BACLOFEN [Concomitant]
  12. CRESTOR [Concomitant]
  13. PARACETAMOL [Concomitant]
  14. VITAMIN D3 [Concomitant]
  15. TRICOR [Concomitant]
  16. PROMETHAZINE [Concomitant]
  17. PRILOSEC [Concomitant]
  18. KLOR-CON [Concomitant]
  19. VITAMIN B12 [Concomitant]
  20. DECADRON [Concomitant]
     Route: 048

REACTIONS (5)
  - Skin lesion [Recovered/Resolved]
  - Mass [Not Recovered/Not Resolved]
  - Foot fracture [Not Recovered/Not Resolved]
  - Nasopharyngitis [Recovered/Resolved]
  - Injection site reaction [Recovered/Resolved]
